FAERS Safety Report 4637549-2 (Version None)
Quarter: 2005Q2

REPORT INFORMATION
  Report Type: 
  Country: None (occurrence: None)
  Receive Date: 20050325
  Receipt Date: 20041123
  Transmission Date: 20051028
  Serious: No
  Sender: FDA-Public Use
  Company Number: USA041184480

PATIENT
  Age: 74 Year
  Sex: Female
  Weight: 46 kg

DRUGS (10)
  1. FORTEO [Suspect]
     Indication: OSTEOPOROSIS
     Dosage: 20 UG/1 DAY
     Dates: start: 20040419
  2. EVISTA [Suspect]
     Dosage: 60 MG/1 DAY
     Dates: start: 20040101
  3. CALCIUM WITH VITAMIN D [Concomitant]
  4. PANCREASE MT [Concomitant]
  5. MOBIC [Concomitant]
  6. DESYREL [Concomitant]
  7. ALLEGRA D 24 HOUR [Concomitant]
  8. MIACALCIN [Concomitant]
  9. VITAMIN D [Concomitant]
  10. MULTI-VITAMIN [Concomitant]

REACTIONS (3)
  - CONTUSION [None]
  - RASH [None]
  - RASH ERYTHEMATOUS [None]
